FAERS Safety Report 5637648-2 (Version None)
Quarter: 2008Q1

REPORT INFORMATION
  Report Type: 
  Country: None (occurrence: None)
  Receive Date: 20080225
  Receipt Date: 20080220
  Transmission Date: 20080703
  Serious: Yes (Hospitalization)
  Sender: FDA-Public Use
  Company Number: US-GILEAD-2008-0015416

PATIENT
  Sex: Female
  Weight: 52.21 kg

DRUGS (10)
  1. LETAIRIS [Suspect]
     Indication: PULMONARY HYPERTENSION
     Route: 048
     Dates: start: 20071222
  2. IMODIUM [Concomitant]
     Route: 048
  3. SYNTHROID [Concomitant]
     Route: 048
  4. MOTRIN [Concomitant]
     Route: 048
  5. DEXAMETHASONE TAB [Concomitant]
     Route: 048
  6. ZYRTEC [Concomitant]
     Route: 048
  7. LORAZEPAM [Concomitant]
     Route: 048
  8. KLOR-CON [Concomitant]
     Route: 048
  9. TIGAN [Concomitant]
     Route: 048
  10. PREVACID [Concomitant]
     Route: 048

REACTIONS (2)
  - ANAEMIA [None]
  - VITAL FUNCTIONS ABNORMAL [None]
